FAERS Safety Report 7905834-4 (Version None)
Quarter: 2011Q4

REPORT INFORMATION
  Report Type: 
  Country: None (occurrence: None)
  Receive Date: 20111108
  Receipt Date: 20111025
  Transmission Date: 20120403
  Serious: Yes (Life-Threatening, Hospitalization, Congenital Anomaly, Other)
  Sender: FDA-Public Use
  Company Number: 2011MA015709

PATIENT
  Age: 36 Year
  Sex: Female

DRUGS (1)
  1. PROPYLTHIOURACIL TAB [Suspect]
     Indication: HYPERTHYROIDISM
     Dosage: 100 MG;TID

REACTIONS (7)
  - OLIGOHYDRAMNIOS [None]
  - HEPATOTOXICITY [None]
  - GENERAL PHYSICAL HEALTH DETERIORATION [None]
  - LIVER TRANSPLANT [None]
  - CAESAREAN SECTION [None]
  - HEPATIC FAILURE [None]
  - MATERNAL EXPOSURE DURING PREGNANCY [None]
